FAERS Safety Report 20726175 (Version 2)
Quarter: 2022Q2

REPORT INFORMATION
  Report Type: Spontaneous
  Country: BR (occurrence: None)
  Receive Date: 20220419
  Receipt Date: 20220510
  Transmission Date: 20220720
  Serious: Yes (Death, Hospitalization, Other)
  Sender: FDA-Public Use
  Company Number: 2022A154075

PATIENT
  Age: 48 Year
  Sex: Male

DRUGS (1)
  1. CALQUENCE [Suspect]
     Active Substance: ACALABRUTINIB
     Indication: Mantle cell lymphoma
     Route: 048
     Dates: start: 202104

REACTIONS (7)
  - Pancytopenia [Unknown]
  - Lymphoma [Unknown]
  - General physical health deterioration [Fatal]
  - Renal impairment [Fatal]
  - Bronchospasm [Fatal]
  - Febrile neutropenia [Unknown]
  - Headache [Unknown]

NARRATIVE: CASE EVENT DATE: 20210901
